FAERS Safety Report 26200107 (Version 2)
Quarter: 2025Q4

REPORT INFORMATION
  Report Type: Spontaneous
  Country: JP (occurrence: JP)
  Receive Date: 20251225
  Receipt Date: 20251229
  Transmission Date: 20260118
  Serious: Yes (Death, Other)
  Sender: BRISTOL-MYERS SQUIBB COMPANY
  Company Number: JP-BRISTOL-MYERS SQUIBB COMPANY-2025-170809

PATIENT
  Age: 7 Decade
  Sex: Male

DRUGS (2)
  1. YERVOY [Suspect]
     Active Substance: IPILIMUMAB
     Indication: Hepatocellular carcinoma
     Route: 041
  2. OPDIVO [Suspect]
     Active Substance: NIVOLUMAB
     Indication: Hepatocellular carcinoma
     Route: 041

REACTIONS (3)
  - Liver carcinoma ruptured [Fatal]
  - Ascites [Not Recovered/Not Resolved]
  - Aspartate aminotransferase increased [Unknown]

NARRATIVE: CASE EVENT DATE: 20251201
